FAERS Safety Report 15084827 (Version 4)
Quarter: 2018Q3

REPORT INFORMATION
  Report Type: Spontaneous
  Country: US (occurrence: US)
  Receive Date: 20180628
  Receipt Date: 20180921
  Transmission Date: 20181010
  Serious: No
  Sender: FDA-Public Use
  Company Number: US-ACTELION-A-NJ2018-173942

PATIENT
  Age: 57 Year
  Sex: Female

DRUGS (10)
  1. LASIX [Concomitant]
     Active Substance: FUROSEMIDE
  2. METOPROLOL. [Concomitant]
     Active Substance: METOPROLOL
  3. UPTRAVI [Suspect]
     Active Substance: SELEXIPAG
     Indication: PULMONARY HYPERTENSION
     Dosage: UNK
     Route: 048
  4. UPTRAVI [Suspect]
     Active Substance: SELEXIPAG
     Dosage: 600 MCG, BID
     Route: 048
  5. UPTRAVI [Suspect]
     Active Substance: SELEXIPAG
     Dosage: 1200 MCG, UNK
     Route: 048
     Dates: start: 201707
  6. COUMADIN [Concomitant]
     Active Substance: WARFARIN SODIUM
  7. ADEMPAS [Suspect]
     Active Substance: RIOCIGUAT
     Indication: PULMONARY HYPERTENSION
     Dosage: 1 MG, UNK
     Route: 065
     Dates: start: 201802
  8. AMBRISENTAN [Suspect]
     Active Substance: AMBRISENTAN
     Indication: PULMONARY HYPERTENSION
     Dosage: 10 MG, QD
     Route: 065
     Dates: start: 20120417
  9. AMBRISENTAN [Suspect]
     Active Substance: AMBRISENTAN
     Dosage: 5 MG, QD
     Route: 065
  10. WARFARIN [Concomitant]
     Active Substance: WARFARIN

REACTIONS (10)
  - Limb mass [Unknown]
  - Myalgia [Not Recovered/Not Resolved]
  - Dysphagia [Not Recovered/Not Resolved]
  - Headache [Unknown]
  - Dizziness [Unknown]
  - Gait disturbance [Not Recovered/Not Resolved]
  - Abdominal discomfort [Recovered/Resolved]
  - Arthralgia [Not Recovered/Not Resolved]
  - Pain [Not Recovered/Not Resolved]
  - Abdominal pain upper [Unknown]

NARRATIVE: CASE EVENT DATE: 201805
